FAERS Safety Report 7829073-0 (Version None)
Quarter: 2011Q4

REPORT INFORMATION
  Report Type: 
  Country: None (occurrence: None)
  Receive Date: 20111020
  Receipt Date: 20111013
  Transmission Date: 20120403
  Serious: Yes (Hospitalization, Other)
  Sender: FDA-Public Use
  Company Number: BR-SANOFI-AVENTIS-200919195GDDC

PATIENT
  Age: 74 Year
  Sex: Female
  Weight: 75 kg

DRUGS (19)
  1. VITAMIN B COMPLEX CAP [Concomitant]
     Route: 048
  2. PANTOPRAZOLE [Concomitant]
     Route: 048
  3. AUTOPEN 24 [Suspect]
     Dates: start: 20090801
  4. ZOLOFT [Concomitant]
  5. SERTRALINE HYDROCHLORIDE [Concomitant]
     Route: 048
  6. NITRENDIPINE [Concomitant]
     Indication: BLOOD PRESSURE
     Route: 048
  7. CARVEDILOL [Concomitant]
     Indication: HYPERTENSION
     Route: 048
  8. HUMALOG [Concomitant]
     Dosage: ACCORDING TO GLYCEMIA
  9. AMIODARONE HYDROCHLORIDE [Concomitant]
     Indication: HYPERTENSION
     Route: 048
  10. COUMADIN [Concomitant]
     Indication: ANTICOAGULANT THERAPY
     Dosage: DOSE AS USED: 2.5 OR 3.0 MG
     Route: 048
  11. ATORVASTATIN [Concomitant]
     Indication: BLOOD PRESSURE
     Route: 048
  12. OPTIPEN [Suspect]
  13. ALL OTHER THERAPEUTIC PRODUCTS [Concomitant]
     Route: 048
  14. BACLOFEN [Concomitant]
     Route: 048
  15. LANTUS [Suspect]
     Route: 058
     Dates: start: 20090801
  16. LANTUS [Suspect]
     Route: 058
  17. ALDACTONE [Concomitant]
     Indication: CEREBROVASCULAR ACCIDENT
     Route: 048
  18. LASIX [Concomitant]
     Indication: DIURETIC THERAPY
     Route: 048
  19. LOSARTAN POTASSIUM [Concomitant]
     Indication: HYPERTENSION
     Route: 048

REACTIONS (14)
  - SLUGGISHNESS [None]
  - PRODUCT QUALITY ISSUE [None]
  - VISUAL IMPAIRMENT [None]
  - FATIGUE [None]
  - CEREBROVASCULAR ACCIDENT [None]
  - HYPOGLYCAEMIA [None]
  - PALPITATIONS [None]
  - INJECTION SITE REACTION [None]
  - SOMNOLENCE [None]
  - PARALYSIS [None]
  - HEARING IMPAIRED [None]
  - HEART RATE INCREASED [None]
  - HYPERGLYCAEMIA [None]
  - INJECTION SITE PAIN [None]
